FAERS Safety Report 8263046-1 (Version None)
Quarter: 2012Q1

REPORT INFORMATION
  Report Type: 
  Country: None (occurrence: None)
  Receive Date: 20120327
  Receipt Date: 20110414
  Transmission Date: 20120608
  Serious: Yes (Hospitalization)
  Sender: FDA-Public Use
  Company Number: PHHY2011US32406

PATIENT
  Age: 74 Year
  Sex: Female

DRUGS (2)
  1. GLEEVEC [Suspect]
     Dosage: 400 MG, DAILY, ORAL, 200 MG, ORAL
     Route: 048
     Dates: start: 20101217, end: 20110405
  2. GLEEVEC [Suspect]
     Dosage: 400 MG, DAILY, ORAL, 200 MG, ORAL
     Route: 048
     Dates: start: 20110414

REACTIONS (3)
  - VOMITING [None]
  - DIARRHOEA [None]
  - DEHYDRATION [None]
